FAERS Safety Report 5373645-2 (Version None)
Quarter: 2007Q2

REPORT INFORMATION
  Report Type: 
  Country: None (occurrence: None)
  Receive Date: 20070628
  Receipt Date: 20070621
  Transmission Date: 20071010
  Serious: Yes (Hospitalization)
  Sender: FDA-Public Use
  Company Number: AT-ROCHE-433466

PATIENT
  Age: 34 Year
  Sex: Male
  Weight: 65 kg

DRUGS (15)
  1. PEG-INTERFERON ALFA 2A (RO 25-8310) [Suspect]
     Dosage: FORMULATION REPORTED AS SYRINGE. DATE OF LAST DOSE PRIOR TO SAE WAS 28 DEC 2005
     Route: 058
     Dates: start: 20050914, end: 20060104
  2. PEG-INTERFERON ALFA 2A (RO 25-8310) [Suspect]
     Dosage: FORMULATION REPORTED AS SYRINGE. PATIENT REPORTED AS A NON-RESPONDER IN WEEK 24.
     Route: 058
     Dates: start: 20060118, end: 20060301
  3. ALUMINUM HYDROXIDE GEL [Concomitant]
  4. PANCREATIN TRIPLE STRENGTH CAP [Concomitant]
  5. SEVELAMER HYDROCHLORIDE [Concomitant]
  6. ATENOLOL [Concomitant]
  7. LOW MOLECULAR WEIGHT HEPARINS [Concomitant]
  8. EPOGEN [Concomitant]
  9. GANCICLOVIR [Concomitant]
     Dates: start: 20060607, end: 20060707
  10. MYCOPHENOLATE MOFETIL [Concomitant]
     Dates: start: 20060607
  11. CALCITRIOL [Concomitant]
     Dates: start: 20060607
  12. ESOMEPRAZOLE MAGNESIUM [Concomitant]
     Dates: start: 20060601
  13. TRIMETHOPRIM + SULFAMETHOXAZOLE [Concomitant]
     Dates: start: 20060607
  14. NADROPARIN [Concomitant]
     Dates: start: 20060607, end: 20060707
  15. CARVEDILOL [Concomitant]
     Dates: start: 20060607, end: 20060707

REACTIONS (2)
  - RENAL TRANSPLANT [None]
  - TRANSPLANT REJECTION [None]
